FAERS Safety Report 9026663 (Version 1)
Quarter: 2013Q1

REPORT INFORMATION
  Report Type: Spontaneous
  Country: US (occurrence: None)
  Receive Date: 20130114
  Receipt Date: 20130114
  Transmission Date: 20140127
  Serious: Yes (Other)
  Sender: FDA-Public Use
  Company Number: None

PATIENT
  Age: 64 Year
  Sex: Female
  Weight: 70.31 kg

DRUGS (1)
  1. NAPROXEN [Suspect]
     Indication: ARTHRITIS
     Dates: start: 20121117, end: 20121201

REACTIONS (5)
  - Local swelling [None]
  - Joint swelling [None]
  - Pain [None]
  - Blister infected [None]
  - Local swelling [None]
